FAERS Safety Report 13526073 (Version 1)
Quarter: 2017Q2

REPORT INFORMATION
  Report Type: Spontaneous
  Country: US (occurrence: US)
  Receive Date: 20170509
  Receipt Date: 20170509
  Transmission Date: 20170830
  Serious: No
  Sender: FDA-Public Use
  Company Number: US-ASTRAZENECA-2017SE45829

PATIENT
  Age: 78 Year
  Sex: Female

DRUGS (1)
  1. PRILOSEC [Suspect]
     Active Substance: OMEPRAZOLE MAGNESIUM
     Indication: HIATUS HERNIA
     Route: 048

REACTIONS (11)
  - Weight decreased [Unknown]
  - Stress [Unknown]
  - Gait disturbance [Unknown]
  - Biopsy lymph gland abnormal [Unknown]
  - Vitamin B12 increased [Unknown]
  - Feeling abnormal [Unknown]
  - Product use in unapproved indication [Unknown]
  - Blood cholesterol decreased [Unknown]
  - Arthropathy [Recovering/Resolving]
  - Depression [Unknown]
  - Off label use [Not Recovered/Not Resolved]
